FAERS Safety Report 4917573-2 (Version None)
Quarter: 2006Q1

REPORT INFORMATION
  Report Type: 
  Country: None (occurrence: None)
  Receive Date: 20060221
  Receipt Date: 20060209
  Transmission Date: 20060701
  Serious: Yes (Other)
  Sender: FDA-Public Use
  Company Number: JP-JNJFOC-20060201883

PATIENT
  Age: 45 Year
  Sex: Male

DRUGS (1)
  1. TAVANIC 500 [Suspect]
     Indication: PROSTATITIS
     Route: 048
     Dates: start: 20030515, end: 20030525

REACTIONS (1)
  - LIGAMENT INJURY [None]
